FAERS Safety Report 7997899 (Version 2)
Quarter: 2012Q4

REPORT INFORMATION
  Report Type: 
  Country: CA (occurrence: CA)
  Receive Date: 20110620
  Receipt Date: 20121111
  Transmission Date: 20130627
  Serious: Yes (Other)
  Sender: FDA-Public Use
  Company Number: PHHY2008CA06809

PATIENT
  Sex: Female

DRUGS (6)
  1. SANDOSTATIN LAR [Suspect]
     Indication: ACROMEGALY
     Dosage: 40 mg every four weeks
     Route: 030
     Dates: start: 20050910
  2. ALVESCO [Concomitant]
  3. PANTOLOC [Concomitant]
  4. VENTOLIN [Concomitant]
     Dosage: UNK UKN, BID
  5. METHADON [Concomitant]
  6. CORTEF [Concomitant]
     Dosage: 20 mg in the morning and 5 mg in the evening

REACTIONS (15)
  - Oesophageal perforation [Unknown]
  - Cardiac disorder [Unknown]
  - Pain [Unknown]
  - Asthma [Unknown]
  - Dyspnoea [Unknown]
  - Weight decreased [Unknown]
  - Nocturia [Unknown]
  - Oropharyngeal pain [Recovering/Resolving]
  - Oesophageal discomfort [Unknown]
  - Gastrooesophageal reflux disease [Recovered/Resolved]
  - Sensation of heaviness [Unknown]
  - Oral herpes [Unknown]
  - Anaemia [Unknown]
  - Headache [Not Recovered/Not Resolved]
  - Fatigue [Unknown]
